FAERS Safety Report 5839962-4 (Version None)
Quarter: 2008Q3

REPORT INFORMATION
  Report Type: 
  Country: None (occurrence: None)
  Receive Date: 20080807
  Receipt Date: 20080807
  Transmission Date: 20090109
  Serious: No
  Sender: FDA-Public Use
  Company Number: None

PATIENT
  Sex: Female
  Weight: 65.7716 kg

DRUGS (1)
  1. FOSAMAX [Suspect]
     Indication: OSTEOPOROSIS
     Dosage: 70MG 1 X WEEK ORAL
     Route: 048
     Dates: start: 20000101, end: 20080610

REACTIONS (2)
  - FALL [None]
  - OSTEONECROSIS [None]
